FAERS Safety Report 20727101 (Version 4)
Quarter: 2024Q1

REPORT INFORMATION
  Report Type: Spontaneous
  Country: US (occurrence: US)
  Receive Date: 20220419
  Receipt Date: 20240115
  Transmission Date: 20240410
  Serious: No
  Sender: FDA-Public Use
  Company Number: US-PFIZER INC-2021233632

PATIENT
  Age: 40 Year
  Sex: Female

DRUGS (2)
  1. IBRANCE [Suspect]
     Active Substance: PALBOCICLIB
     Indication: Breast cancer female
     Dosage: 125 MG, CYCLIC [QD (EVERYDAY) X 21 DAYS]
     Dates: start: 20201224
  2. IBRANCE [Suspect]
     Active Substance: PALBOCICLIB
     Dosage: TAKE ON DAYS 1 TO 21 FOLLOWED BY 7 DAYS OFF. REPEAT EVERY 28 DAYS
     Route: 048
     Dates: start: 20231023, end: 20231225

REACTIONS (3)
  - Blood test abnormal [Not Recovered/Not Resolved]
  - Insomnia [Unknown]
  - Product prescribing error [Unknown]

NARRATIVE: CASE EVENT DATE: 20210101
